FAERS Safety Report 5019549-6 (Version None)
Quarter: 2006Q2

REPORT INFORMATION
  Report Type: 
  Country: None (occurrence: None)
  Receive Date: 20060601
  Receipt Date: 20060515
  Transmission Date: 20061013
  Serious: Yes (Hospitalization)
  Sender: FDA-Public Use
  Company Number: 20062988

PATIENT
  Sex: Male

DRUGS (1)
  1. LIORESAL [Suspect]
     Indication: MUSCLE SPASTICITY
     Dosage: MCG, DAILY, INTRATHECAL
     Route: 037

REACTIONS (6)
  - CATHETER RELATED COMPLICATION [None]
  - HYPOAESTHESIA [None]
  - INFLAMMATION [None]
  - MASS [None]
  - NERVOUS SYSTEM DISORDER [None]
  - PAIN IN EXTREMITY [None]
